FAERS Safety Report 11432685 (Version 1)
Quarter: 2015Q3

REPORT INFORMATION
  Report Type: Spontaneous
  Country: US (occurrence: US)
  Receive Date: 20150828
  Receipt Date: 20150828
  Transmission Date: 20151125
  Serious: Yes (Hospitalization)
  Sender: FDA-Public Use
  Company Number: US-BAYER-2015-408162

PATIENT
  Age: 78 Year
  Sex: Male
  Weight: 111.11 kg

DRUGS (2)
  1. TINACTIN [Suspect]
     Active Substance: TOLNAFTATE
     Route: 061
  2. MULTIPLE VITAMINS [Concomitant]
     Active Substance: VITAMINS

REACTIONS (4)
  - Accidental exposure to product [Unknown]
  - Wound infection [Unknown]
  - Wound drainage [Unknown]
  - Wound complication [Unknown]
